FAERS Safety Report 4598191-5 (Version None)
Quarter: 2005Q1

REPORT INFORMATION
  Report Type: 
  Country: None (occurrence: None)
  Receive Date: 20050302
  Receipt Date: 20050207
  Transmission Date: 20050727
  Serious: No
  Sender: FDA-Public Use
  Company Number: 2005PK00326

PATIENT
  Age: 34 Year
  Sex: Female
  Weight: 64 kg

DRUGS (2)
  1. ZOLADEX [Suspect]
     Indication: ENDOMETRIOSIS
     Dosage: 3.6 MG Q4WK SQ
     Dates: start: 20041018, end: 20041220
  2. ZOLADEX [Suspect]
     Indication: OVARIAN CYST
     Dosage: 3.6 MG Q4WK SQ
     Dates: start: 20041018, end: 20041220

REACTIONS (6)
  - FOREIGN BODY TRAUMA [None]
  - IMPLANT SITE REACTION [None]
  - INJECTION SITE IRRITATION [None]
  - MENOPAUSAL SYMPTOMS [None]
  - RASH PAPULAR [None]
  - REMOVAL OF FOREIGN BODY [None]
